FAERS Safety Report 4335015-5 (Version None)
Quarter: 2004Q2

REPORT INFORMATION
  Report Type: 
  Country: None (occurrence: None)
  Receive Date: 20040408
  Receipt Date: 20040401
  Transmission Date: 20050107
  Serious: Yes (Death)
  Sender: FDA-Public Use
  Company Number: IT-ROCHE-363469

PATIENT
  Age: 67 Year
  Sex: Male

DRUGS (5)
  1. TICLID [Suspect]
     Indication: ATRIAL FIBRILLATION
     Route: 048
     Dates: start: 20040223, end: 20040316
  2. KARVEA [Concomitant]
     Indication: CARDIAC DISORDER
     Route: 048
     Dates: start: 20040308
  3. LANOXIN [Concomitant]
     Indication: ATRIAL FIBRILLATION
     Route: 048
     Dates: start: 19930615
  4. ISOPTIN TAB [Concomitant]
     Indication: CARDIAC DISORDER
     Route: 048
     Dates: start: 20040209
  5. GLUCOPHAGE [Concomitant]
     Route: 048
     Dates: start: 19980615

REACTIONS (11)
  - ACTIVATED PARTIAL THROMBOPLASTIN TIME SHORTENED [None]
  - CEREBRAL HAEMORRHAGE [None]
  - CIRCULATORY COLLAPSE [None]
  - DYSARTHRIA [None]
  - DYSSTASIA [None]
  - HAEMOLYTIC ANAEMIA [None]
  - PROTHROMBIN TIME SHORTENED [None]
  - PYREXIA [None]
  - RENAL FAILURE [None]
  - SUBARACHNOID HAEMORRHAGE [None]
  - THROMBOTIC THROMBOCYTOPENIC PURPURA [None]
